FAERS Safety Report 7303809-X (Version None)
Quarter: 2011Q1

REPORT INFORMATION
  Report Type: 
  Country: None (occurrence: None)
  Receive Date: 20110221
  Receipt Date: 20110211
  Transmission Date: 20110831
  Serious: Yes (Hospitalization)
  Sender: FDA-Public Use
  Company Number: DE-ROCHE-759393

PATIENT
  Sex: Female
  Weight: 69 kg

DRUGS (3)
  1. BEVACIZUMAB [Suspect]
     Dosage: FREQ: DAY 1 OF 3 WEEK CYCLE (PER PROTOCOL) LAST DOSE PRIOR TO SAE: 29 NOV 2010
     Route: 042
     Dates: start: 20101129
  2. VINORELBINE [Suspect]
     Dosage: FREQ: ON DAYS 1 AND 8 OF A 3 WEEK CYCLE (PER PROTOCOL) LAST DOSE PRIOR TO SAE: 6 DEC 2010
     Route: 042
     Dates: start: 20101129
  3. CAPECITABINE [Suspect]
     Dosage: FREQ: ON DAYS 1-14 OF 3 WEEK CYCLE (PER PROTOCOL) LAST DOSE PRIOR TO SAE: 12 DEC 2010
     Route: 048
     Dates: start: 20101129

REACTIONS (2)
  - GENERAL PHYSICAL HEALTH DETERIORATION [None]
  - PANCYTOPENIA [None]
